FAERS Safety Report 16478991 (Version 3)
Quarter: 2021Q4

REPORT INFORMATION
  Report Type: Spontaneous
  Country: GB (occurrence: GB)
  Receive Date: 20190626
  Receipt Date: 20211007
  Transmission Date: 20220303
  Serious: Yes (Hospitalization, Other)
  Sender: FDA-Public Use
  Company Number: GB-RECKITT BENCKISER HEALTHCARE INT LIMITED-RB-80268-2019

PATIENT
  Age: 60 Year
  Sex: Male

DRUGS (3)
  1. RANITIDINE [Suspect]
     Active Substance: RANITIDINE
     Indication: Product used for unknown indication
     Dosage: UNK
     Route: 065
  2. LISINOPRIL [Suspect]
     Active Substance: LISINOPRIL
     Indication: Product used for unknown indication
     Dosage: UNK
     Route: 065
  3. ASPIRIN [Suspect]
     Active Substance: ASPIRIN
     Indication: Product used for unknown indication
     Dosage: UNK
     Route: 065

REACTIONS (17)
  - Pneumopericardium [Recovered/Resolved]
  - Respiratory distress [Unknown]
  - Acute myocardial infarction [Unknown]
  - Stridor [Unknown]
  - Subcutaneous emphysema [Recovered/Resolved]
  - Post procedural haemorrhage [Unknown]
  - Cyanosis central [Unknown]
  - Wheezing [Unknown]
  - Pneumothorax [Unknown]
  - Haemorrhage [Recovered/Resolved]
  - Oxygen saturation decreased [Recovered/Resolved]
  - Laryngeal oedema [Unknown]
  - Agitation [Unknown]
  - Anaphylactic reaction [Unknown]
  - Dyspnoea [Unknown]
  - Myocardial infarction [Recovered/Resolved]
  - Tachycardia [Recovered/Resolved]
